FAERS Safety Report 7396421-8 (Version None)
Quarter: 2011Q1

REPORT INFORMATION
  Report Type: 
  Country: None (occurrence: None)
  Receive Date: 20110325
  Receipt Date: 20110315
  Transmission Date: 20110831
  Serious: Yes (Other)
  Sender: FDA-Public Use
  Company Number: B0707332A

PATIENT
  Sex: 0

DRUGS (3)
  1. NICODERM CQ [Suspect]
     Dosage: TRANSPLACENTARY
     Route: 064
  2. METHADONE HCL [Suspect]
     Dosage: TRANSPLACENTARY
     Route: 064
  3. OPIATE (FORMULATION UNKNOWN) (OPIATE) [Suspect]
     Dosage: TRANSPLACENTARY
     Route: 064

REACTIONS (3)
  - MATERNAL DRUGS AFFECTING FOETUS [None]
  - DRUG WITHDRAWAL SYNDROME NEONATAL [None]
  - HEAD CIRCUMFERENCE ABNORMAL [None]
